FAERS Safety Report 16016092 (Version 2)
Quarter: 2019Q1

REPORT INFORMATION
  Report Type: Spontaneous
  Country: DE (occurrence: DE)
  Receive Date: 20190228
  Receipt Date: 20190318
  Transmission Date: 20190418
  Serious: Yes (Death, Other)
  Sender: FDA-Public Use
  Company Number: DE-ASTELLAS-2019US007455

PATIENT
  Age: 1 Year
  Sex: Female

DRUGS (2)
  1. TACROLIMUS. [Suspect]
     Active Substance: TACROLIMUS
     Indication: LIVER TRANSPLANT
     Dosage: UNK, UNKNOWN FREQ.
     Route: 065
  2. MYCOPHENOLATE MOFETIL. [Suspect]
     Active Substance: MYCOPHENOLATE MOFETIL
     Indication: LIVER TRANSPLANT
     Dosage: UNK UNK, UNKNOWN FREQ.
     Route: 065

REACTIONS (21)
  - Lung infection [Unknown]
  - Portal hypertension [Unknown]
  - Subdural haemorrhage [Unknown]
  - Autoimmune enteropathy [Unknown]
  - Type 1 diabetes mellitus [Unknown]
  - Escherichia sepsis [Unknown]
  - Cholestasis [Unknown]
  - Multiple organ dysfunction syndrome [Unknown]
  - Bronchopulmonary aspergillosis [Unknown]
  - Epidural haemorrhage [Unknown]
  - Hepatitis [Unknown]
  - Adenoviral hepatitis [Unknown]
  - Autoimmune thyroiditis [Unknown]
  - Autoimmune hepatitis [Unknown]
  - Thrombocytopenia [Unknown]
  - Sepsis [Fatal]
  - Hypersplenism [Unknown]
  - Hepatic cirrhosis [Unknown]
  - Pancytopenia [Unknown]
  - Staphylococcal infection [Unknown]
  - Seizure [Unknown]
